FAERS Safety Report 7745247-1 (Version None)
Quarter: 2011Q3

REPORT INFORMATION
  Report Type: 
  Country: None (occurrence: None)
  Receive Date: 20110913
  Receipt Date: 20110905
  Transmission Date: 20111222
  Serious: Yes (Hospitalization, Other)
  Sender: FDA-Public Use
  Company Number: DE-AMGEN-DEUCT2011044605

PATIENT
  Age: 71 Year
  Sex: Female
  Weight: 70 kg

DRUGS (6)
  1. ALFASON [Concomitant]
     Dosage: UNK, 2X/DAY
     Dates: start: 20110701
  2. ETANERCEPT [Suspect]
     Indication: PSORIASIS
     Dosage: 50 MG, QWK
     Route: 058
     Dates: start: 20110302, end: 20110706
  3. ETANERCEPT [Suspect]
     Indication: PSORIATIC ARTHROPATHY
  4. ALFASON [Concomitant]
     Indication: PSORIATIC ARTHROPATHY
     Dosage: UNK UNK, QD
     Dates: start: 20110301
  5. CANDESARTAN CILEXETIL [Concomitant]
     Indication: ESSENTIAL HYPERTENSION
     Dosage: 1 DF, 1X/DAY
  6. CORTISONE ACETATE [Concomitant]
     Indication: PSORIATIC ARTHROPATHY
     Dosage: UNK UNK, QD

REACTIONS (4)
  - SWELLING FACE [None]
  - PSORIATIC ARTHROPATHY [None]
  - CONDITION AGGRAVATED [None]
  - CYANOSIS [None]
